FAERS Safety Report 15548003 (Version 4)
Quarter: 2022Q1

REPORT INFORMATION
  Report Type: Spontaneous
  Country: BR (occurrence: BR)
  Receive Date: 20181024
  Receipt Date: 20220130
  Transmission Date: 20220423
  Serious: Yes (Hospitalization, Other)
  Sender: FDA-Public Use
  Company Number: BR-JAZZ-2018-BR-015590

PATIENT
  Age: 3 Year
  Sex: Female

DRUGS (2)
  1. DEFIBROTIDE SODIUM [Suspect]
     Active Substance: DEFIBROTIDE SODIUM
     Indication: Venoocclusive disease
     Dosage: 200 MG X10 INYX1 FCO SOLUTION INJECTABLE
     Route: 042
     Dates: start: 2018, end: 2018
  2. DEFIBROTIDE SODIUM [Suspect]
     Active Substance: DEFIBROTIDE SODIUM
     Indication: Thalassaemia

REACTIONS (10)
  - Acute kidney injury [Unknown]
  - Respiratory failure [Unknown]
  - Unresponsive to stimuli [Unknown]
  - Electroencephalogram abnormal [Unknown]
  - Hepatic failure [Not Recovered/Not Resolved]
  - Leukopenia [Not Recovered/Not Resolved]
  - Thrombocytopenia [Not Recovered/Not Resolved]
  - Anaemia [Not Recovered/Not Resolved]
  - Oliguria [Not Recovered/Not Resolved]
  - Transaminases increased [Not Recovered/Not Resolved]

NARRATIVE: CASE EVENT DATE: 20180101
